FAERS Safety Report 19070452 (Version 1)
Quarter: 2021Q1

REPORT INFORMATION
  Report Type: Report from Study
  Country: None (occurrence: US)
  Receive Date: 20210329
  Receipt Date: 20210329
  Transmission Date: 20210420
  Serious: Yes (Hospitalization, Other)
  Sender: FDA-Public Use
  Company Number: US-ABBVIE-21K-163-3783943-00

PATIENT
  Age: 47 Year
  Sex: Male
  Weight: 86.26 kg

DRUGS (3)
  1. HUMIRA [Suspect]
     Active Substance: ADALIMUMAB
     Indication: COLITIS ULCERATIVE
     Route: 058
     Dates: start: 2007
  2. SULFASALAZINE. [Concomitant]
     Active Substance: SULFASALAZINE
     Indication: POLYP
  3. HUMIRA [Suspect]
     Active Substance: ADALIMUMAB
     Indication: PSORIATIC ARTHROPATHY

REACTIONS (15)
  - Precancerous lesion of digestive tract [Recovered/Resolved]
  - Back injury [Recovering/Resolving]
  - Large intestine polyp [Recovered/Resolved]
  - Swelling [Recovered/Resolved]
  - Bursa injury [Recovering/Resolving]
  - Joint swelling [Recovered/Resolved]
  - Back pain [Not Recovered/Not Resolved]
  - Ligament injury [Recovering/Resolving]
  - Road traffic accident [Recovered/Resolved]
  - Concussion [Recovering/Resolving]
  - Joint injury [Recovering/Resolving]
  - Contusion [Recovered/Resolved]
  - Large intestine polyp [Not Recovered/Not Resolved]
  - Pain in extremity [Not Recovered/Not Resolved]
  - Ankylosing spondylitis [Recovering/Resolving]

NARRATIVE: CASE EVENT DATE: 2008
